FAERS Safety Report 24888336 (Version 1)
Quarter: 2025Q1

REPORT INFORMATION
  Report Type: Spontaneous
  Country: NL (occurrence: NL)
  Receive Date: 20250127
  Receipt Date: 20250127
  Transmission Date: 20250409
  Serious: Yes (Other)
  Sender: TEVA
  Company Number: None

PATIENT
  Age: 53 Year
  Sex: Male
  Weight: 71 kg

DRUGS (1)
  1. ROSUVASTATIN [Suspect]
     Active Substance: ROSUVASTATIN
     Indication: Hypercholesterolaemia
     Dosage: RECENTLY INCREASED TO 30 SO 1 X20 + 1 X1016; BRAND NAME NOT SPECIFIED; 16.376.021
     Route: 048
     Dates: start: 20150101

REACTIONS (2)
  - Dupuytren^s contracture [Not Recovered/Not Resolved]
  - Product substitution issue [Unknown]
